FAERS Safety Report 18602156 (Version 1)
Quarter: 2020Q4

REPORT INFORMATION
  Report Type: Spontaneous
  Country: US (occurrence: US)
  Receive Date: 20201210
  Receipt Date: 20201210
  Transmission Date: 20210114
  Serious: Yes (Hospitalization)
  Sender: FDA-Public Use
  Company Number: US-PFIZER INC-2020484327

PATIENT
  Age: 81 Year
  Sex: Female
  Weight: 72 kg

DRUGS (1)
  1. AMIODARONE HCL [Suspect]
     Active Substance: AMIODARONE HYDROCHLORIDE
     Indication: ATRIAL FIBRILLATION
     Dosage: UNK, 2X/DAY (LOADING DOSE TO START FOR THE FIRST WEEK, THEN TOOK IT TWICE A DAY)

REACTIONS (6)
  - Alopecia [Unknown]
  - Toxicity to various agents [Recovered/Resolved]
  - Illness [Unknown]
  - Dyspnoea [Unknown]
  - Insomnia [Unknown]
  - Blood glucose increased [Unknown]
